FAERS Safety Report 4353911-X (Version None)
Quarter: 2004Q2

REPORT INFORMATION
  Report Type: 
  Country: None (occurrence: None)
  Receive Date: 20040430
  Receipt Date: 20040422
  Transmission Date: 20050107
  Serious: Yes (Hospitalization, Other)
  Sender: FDA-Public Use
  Company Number: HQWYE569722APR04

PATIENT
  Age: 75 Year
  Sex: Female

DRUGS (5)
  1. PANTOZOL (PANTOPRAZOLE, TABLET, DELAYED RELEASE) [Suspect]
     Indication: HELICOBACTER GASTRITIS
     Dosage: 40 MG 2X PER 1 DAY
     Route: 048
     Dates: start: 20040318, end: 20040325
  2. AMOXICILLIN [Suspect]
     Indication: HELICOBACTER GASTRITIS
     Dosage: 1000 MG 2X PER 1 DAY
     Route: 048
     Dates: start: 20040318, end: 20040325
  3. CLARITHROMYCIN [Suspect]
     Indication: HELICOBACTER GASTRITIS
     Dosage: 500 MG 2X PER 1 DAY
     Route: 048
     Dates: start: 20040318, end: 20040325
  4. ACETYLSALICYLIC ACID SRT [Concomitant]
  5. DIGITOXIN TAB [Concomitant]

REACTIONS (1)
  - DRUG ERUPTION [None]
